FAERS Safety Report 7573746-4 (Version None)
Quarter: 2011Q2

REPORT INFORMATION
  Report Type: 
  Country: None (occurrence: None)
  Receive Date: 20110627
  Receipt Date: 20110620
  Transmission Date: 20111010
  Serious: Yes (Other)
  Sender: FDA-Public Use
  Company Number: FR-ROCHE-784524

PATIENT
  Age: 69 Year
  Sex: Female

DRUGS (1)
  1. BONIVA [Suspect]
     Dosage: DOSE: 1 TABLET
     Route: 065
     Dates: start: 20070701

REACTIONS (3)
  - PAIN IN JAW [None]
  - GINGIVAL PAIN [None]
  - GINGIVITIS [None]
